FAERS Safety Report 9417654 (Version 1)
Quarter: 2013Q3

REPORT INFORMATION
  Report Type: Spontaneous
  Country: US (occurrence: None)
  Receive Date: 20130722
  Receipt Date: 20130722
  Transmission Date: 20140515
  Serious: Yes (Other)
  Sender: FDA-Public Use
  Company Number: None

PATIENT
  Age: 56 Year
  Sex: Female

DRUGS (1)
  1. STIVARGA [Suspect]
     Route: 048
     Dates: start: 20130629, end: 20130706

REACTIONS (2)
  - Palmar-plantar erythrodysaesthesia syndrome [None]
  - Pyrexia [None]
